FAERS Safety Report 15023239 (Version 2)
Quarter: 2018Q3

REPORT INFORMATION
  Report Type: Spontaneous
  Country: US (occurrence: US)
  Receive Date: 20180618
  Receipt Date: 20180809
  Transmission Date: 20181010
  Serious: No
  Sender: FDA-Public Use
  Company Number: US-PFIZER INC-2018245447

PATIENT
  Age: 63 Year
  Sex: Female

DRUGS (5)
  1. MEPERIDINE [Suspect]
     Active Substance: MEPERIDINE
     Dosage: UNK
  2. FLUARIX NOS [Suspect]
     Active Substance: INFLUENZA VIRUS VACCINE
     Dosage: UNK
  3. PROPOXYPHENE N?ACETAMINOPHEN [Suspect]
     Active Substance: ACETAMINOPHEN\PROPOXYPHENE NAPSYLATE
  4. CARISOPRODOL. [Suspect]
     Active Substance: CARISOPRODOL
  5. MORPHINE SULFATE. [Suspect]
     Active Substance: MORPHINE SULFATE
     Dosage: UNK

REACTIONS (3)
  - Drug hypersensitivity [Unknown]
  - Nausea [Unknown]
  - Vomiting [Unknown]
